FAERS Safety Report 7043247-0 (Version None)
Quarter: 2010Q4

REPORT INFORMATION
  Report Type: 
  Country: None (occurrence: None)
  Receive Date: 20101013
  Receipt Date: 20091230
  Transmission Date: 20110411
  Serious: No
  Sender: FDA-Public Use
  Company Number: US-ASTRAZENECA-2009SE33956

PATIENT
  Age: 21864 Day
  Sex: Female

DRUGS (4)
  1. SYMBICORT [Suspect]
     Indication: BRONCHITIS
     Dosage: 160 MCG DAILY
     Route: 055
     Dates: start: 20091230
  2. PREVACID [Concomitant]
  3. SYNTHROID [Concomitant]
  4. PROZAC [Concomitant]

REACTIONS (3)
  - DRY MOUTH [None]
  - FEELING JITTERY [None]
  - TREMOR [None]
